FAERS Safety Report 6036618-2 (Version None)
Quarter: 2009Q1

REPORT INFORMATION
  Report Type: 
  Country: None (occurrence: None)
  Receive Date: 20090114
  Receipt Date: 20090109
  Transmission Date: 20090719
  Serious: Yes (Hospitalization)
  Sender: FDA-Public Use
  Company Number: US-ABBOTT-09P-163-0496646-00

PATIENT
  Sex: Female

DRUGS (4)
  1. HUMIRA [Suspect]
     Indication: CROHN'S DISEASE
     Route: 058
     Dates: start: 20081001, end: 20090102
  2. HUMIRA [Suspect]
     Route: 058
     Dates: start: 20080918, end: 20080918
  3. HUMIRA [Suspect]
     Route: 058
     Dates: start: 20081001, end: 20081001
  4. HUMIRA [Suspect]
     Dates: start: 20090102

REACTIONS (2)
  - PAINFUL DEFAECATION [None]
  - VAGINAL DISCHARGE [None]
